FAERS Safety Report 5431739-7 (Version None)
Quarter: 2007Q3

REPORT INFORMATION
  Report Type: 
  Country: None (occurrence: None)
  Receive Date: 20070830
  Receipt Date: 20070820
  Transmission Date: 20080115
  Serious: Yes (Hospitalization)
  Sender: FDA-Public Use
  Company Number: US-SHR-US-2007-031202

PATIENT
  Age: 37 Year
  Sex: Female

DRUGS (8)
  1. BETASERON [Suspect]
     Dosage: 8 MIU, EVERY 2D
     Route: 058
     Dates: start: 20060816
  2. LANTUS [Concomitant]
  3. NOVOLOG [Concomitant]
  4. PREGABALIN [Concomitant]
  5. KLONOPIN [Concomitant]
  6. CLARITIN [Concomitant]
  7. SIMVASTATIN [Concomitant]
  8. ZOLOFT [Concomitant]

REACTIONS (2)
  - BACK PAIN [None]
  - DYSPHAGIA [None]
